FAERS Safety Report 14777807 (Version 1)
Quarter: 2018Q2

REPORT INFORMATION
  Report Type: Spontaneous
  Country: NL (occurrence: NL)
  Receive Date: 20180419
  Receipt Date: 20180419
  Transmission Date: 20180711
  Serious: Yes (Other)
  Sender: FDA-Public Use
  Company Number: NL-CONCORDIA PHARMACEUTICALS INC.-E2B_00011113

PATIENT
  Sex: Male

DRUGS (4)
  1. TRANYLCYPROMINE [Suspect]
     Active Substance: TRANYLCYPROMINE
  2. LORAZEPAM. [Concomitant]
     Active Substance: LORAZEPAM
     Dosage: TWO TO THREE TIMES PER DAY
  3. TRAZODON [Concomitant]
     Active Substance: TRAZODONE HYDROCHLORIDE
  4. PARACETAMOL [Concomitant]
     Active Substance: ACETAMINOPHEN
     Dosage: PER NIGHT

REACTIONS (13)
  - Headache [Unknown]
  - Discomfort [Unknown]
  - Insomnia [Recovering/Resolving]
  - Heart rate increased [Unknown]
  - Aggression [Unknown]
  - Endodontic procedure [Unknown]
  - Therapeutic response unexpected [Unknown]
  - Hypersensitivity [Unknown]
  - Depression [Unknown]
  - Dental discomfort [Unknown]
  - Blood pressure increased [Unknown]
  - Osteoarthritis [Unknown]
  - Agitation [Unknown]
